FAERS Safety Report 18056675 (Version 2)
Quarter: 2021Q2

REPORT INFORMATION
  Report Type: Spontaneous
  Country: CA (occurrence: CA)
  Receive Date: 20200722
  Receipt Date: 20210628
  Transmission Date: 20210717
  Serious: Yes (Hospitalization)
  Sender: FDA-Public Use
  Company Number: CA-TEVA-2020-CA-1802966

PATIENT
  Age: 78 Year
  Sex: Female

DRUGS (8)
  1. ALENDRONATE [Suspect]
     Active Substance: ALENDRONATE SODIUM
     Indication: OSTEOPOROSIS
  2. THYROXINE [Concomitant]
     Active Substance: LEVOTHYROXINE
  3. BISOPROLOL [Concomitant]
     Active Substance: BISOPROLOL
  4. MULTIVITAMINE(S) [Concomitant]
     Active Substance: VITAMINS
  5. FERROUS GLUCONATE [Concomitant]
     Active Substance: FERROUS GLUCONATE
  6. ROSUVASTATIN. [Concomitant]
     Active Substance: ROSUVASTATIN
  7. ASA [Concomitant]
     Active Substance: ASPIRIN
  8. RABEPRAZOLE [Concomitant]
     Active Substance: RABEPRAZOLE

REACTIONS (3)
  - Multiple fractures [Unknown]
  - Femur fracture [Unknown]
  - Hip fracture [Unknown]
